FAERS Safety Report 9454888 (Version 1)
Quarter: 2013Q3

REPORT INFORMATION
  Report Type: Other
  Country: ZA (occurrence: ZA)
  Receive Date: 20130813
  Receipt Date: 20130813
  Transmission Date: 20140515
  Serious: Yes (Other)
  Sender: FDA-Public Use
  Company Number: ZA-SUN PHARMACEUTICAL INDUSTRIES LTD-2013SUN03353

PATIENT
  Sex: 0

DRUGS (3)
  1. PANTOPRAZOLE [Suspect]
     Indication: PRODUCT USED FOR UNKNOWN INDICATION
     Dosage: 1 DF, PER DAY
     Route: 042
     Dates: start: 20130724, end: 20130727
  2. MAXOLON [Suspect]
     Indication: PRODUCT USED FOR UNKNOWN INDICATION
     Dosage: UNK, TDS
     Route: 042
     Dates: start: 20130724, end: 20130727
  3. DEXTROSE [Suspect]
     Indication: PRODUCT USED FOR UNKNOWN INDICATION
     Dosage: UNK
     Route: 042
     Dates: start: 20130724, end: 20130727

REACTIONS (2)
  - Blister [Recovered/Resolved]
  - Skin burning sensation [Recovered/Resolved]
